FAERS Safety Report 10029077 (Version 1)
Quarter: 2014Q1

REPORT INFORMATION
  Report Type: Report from Study
  Country: US (occurrence: US)
  Receive Date: 20140321
  Receipt Date: 20140321
  Transmission Date: 20141002
  Serious: Yes (Other)
  Sender: FDA-Public Use
  Company Number: PHEH2014US005655

PATIENT
  Sex: Female
  Weight: 74.38 kg

DRUGS (8)
  1. GILENYA [Suspect]
     Indication: MULTIPLE SCLEROSIS
     Dosage: 0.5 MG, QD
     Route: 048
     Dates: start: 20120928
  2. AMANTADINE HCL [Concomitant]
     Dosage: 100 MG, UNK
     Route: 048
  3. MACRODANTIN [Concomitant]
     Dosage: 50 MG, UNK
  4. MULTI-VIT [Concomitant]
     Route: 048
  5. OXYBUTYNIN CHLORIDE [Concomitant]
     Dosage: 5 MG, UNK
     Route: 048
  6. SYNTHROID [Concomitant]
     Dosage: 50 UG, UNK
     Route: 048
  7. VIT C [Concomitant]
     Dosage: 1000 MG, UNK
     Route: 048
  8. VIT D [Concomitant]
     Dosage: 2000 U, UNK
     Route: 048

REACTIONS (3)
  - Fall [Unknown]
  - Balance disorder [Unknown]
  - Contusion [Unknown]
